FAERS Safety Report 15226552 (Version 5)
Quarter: 2019Q1

REPORT INFORMATION
  Report Type: Spontaneous
  Country: JP (occurrence: JP)
  Receive Date: 20180801
  Receipt Date: 20190312
  Transmission Date: 20190417
  Serious: Yes (Hospitalization)
  Sender: FDA-Public Use
  Company Number: JP-ASTRAZENECA-2018SE96437

PATIENT
  Age: 69 Year
  Sex: Female
  Weight: 50 kg

DRUGS (20)
  1. HIRUDOID [Concomitant]
     Active Substance: GLYCOSAMINOGLYCANS
     Dosage: DOSE UNKNOWN, FACE AND NECK
     Route: 062
     Dates: start: 20180521
  2. HIRUDOID [Concomitant]
     Active Substance: GLYCOSAMINOGLYCANS
     Dosage: DOSE UNKNOWN, NECK
     Route: 062
     Dates: start: 20180529
  3. SENNOSIDE [Concomitant]
     Active Substance: SENNOSIDES
     Indication: CONSTIPATION
     Dosage: AS REQUIRED12.0MG AS REQUIRED
     Route: 048
     Dates: start: 20180519
  4. BFLUID [Concomitant]
     Active Substance: AMINO ACIDS\DEXTROSE\ELECTROLYTES NOS\VITAMINS
     Dosage: 22:00 TO 10:00500.0ML UNKNOWN
     Route: 041
     Dates: start: 20180705, end: 20180708
  5. MEYLON [Concomitant]
     Active Substance: SODIUM BICARBONATE
     Dosage: NUMBER OF SEPARATE DOSAGES UNKNOWN20.0ML UNKNOWN
     Route: 042
     Dates: start: 20180705, end: 20180705
  6. DESALEX [Concomitant]
     Active Substance: DESLORATADINE
     Indication: PRURITUS
     Dosage: AS REQUIRED5.0MG AS REQUIRED
     Route: 048
     Dates: start: 20180709
  7. CELECOX [Concomitant]
     Active Substance: CELECOXIB
     Dosage: 30 MIN AFTER BREAKFAST AND EVENING MEAL
     Route: 048
     Dates: start: 20180516
  8. LIDOMEX [Concomitant]
     Active Substance: PREDNISOLONE VALERATE ACETATE
     Dosage: DOSE UNKNOWN
     Route: 062
     Dates: start: 20180608
  9. BFLUID [Concomitant]
     Active Substance: AMINO ACIDS\DEXTROSE\ELECTROLYTES NOS\VITAMINS
     Dosage: UNTIL 22:00500.0ML UNKNOWN
     Route: 041
     Dates: start: 20180705, end: 20180705
  10. LOPEMIN [Concomitant]
     Active Substance: LOPERAMIDE HYDROCHLORIDE
     Indication: DIARRHOEA
     Dosage: 1.0MG AS REQUIRED
     Route: 048
     Dates: start: 20180629
  11. SOLDEM 1 [Concomitant]
     Active Substance: DEXTROSE\SODIUM CHLORIDE\SODIUM LACTATE
     Dosage: NUMBER OF SEPARATE DOSAGES UNKNOWN200.0ML UNKNOWN
     Route: 041
     Dates: start: 20180705
  12. IRESSA [Suspect]
     Active Substance: GEFITINIB
     Indication: LUNG ADENOCARCINOMA
     Dosage: 30 MIN AFTER LUNCH
     Route: 048
     Dates: start: 20180519, end: 20180714
  13. TRAMAL OD [Suspect]
     Active Substance: TRAMADOL
     Dosage: EVERY 6 HOURS
     Route: 048
     Dates: start: 20180522
  14. DENOTAS [Concomitant]
     Active Substance: CALCIUM CARBONATE\CHOLECALCIFEROL\MAGNESIUM CARBONATE
     Dosage: 30 MIN AFTER BREAKFAST
     Route: 048
     Dates: start: 20180529
  15. FAMOTIDINE D [Concomitant]
     Active Substance: FAMOTIDINE
     Dosage: 30 MIN AFTER BREAKFAST AND EVENING MEAL
     Route: 048
     Dates: start: 20180516
  16. ANTEBATE [Concomitant]
     Active Substance: BETAMETHASONE DIPROPIONATE
     Dosage: DOSE UNKNOWN, FOUR LIMBS AND CHEST
     Route: 062
     Dates: start: 20180709
  17. RANMARK [Concomitant]
     Active Substance: DENOSUMAB
     Indication: METASTASES TO BONE
     Dosage: 120.0ML UNKNOWN
     Route: 058
     Dates: start: 20180529
  18. ADETPHOS-L [Concomitant]
     Dosage: NUMBER OF SEPARATE DOSAGES UNKNOWN40.0ML UNKNOWN
     Route: 065
     Dates: start: 20180705, end: 20180705
  19. BFLUID [Concomitant]
     Active Substance: AMINO ACIDS\DEXTROSE\ELECTROLYTES NOS\VITAMINS
     Dosage: 10:00 TO 22:00500.0ML UNKNOWN
     Route: 041
     Dates: start: 20180706, end: 20180709
  20. CLOSTRIDIUM BUTYRICUM [Concomitant]
     Active Substance: CLOSTRIDIUM BUTYRICUM SPORES STRAIN M-55
     Dosage: 30 MIN AFTER BREAKFAST, LUNCH, AND EVENING MEAL
     Route: 048
     Dates: start: 20180529

REACTIONS (5)
  - Metastases to bone [Unknown]
  - Skin disorder [Unknown]
  - Metastases to central nervous system [Unknown]
  - Hepatic function abnormal [Recovered/Resolved]
  - Decreased appetite [Recovering/Resolving]

NARRATIVE: CASE EVENT DATE: 20180528
